FAERS Safety Report 24194212 (Version 1)
Quarter: 2024Q3

REPORT INFORMATION
  Report Type: Spontaneous
  Country: US (occurrence: US)
  Receive Date: 20240809
  Receipt Date: 20240809
  Transmission Date: 20241017
  Serious: No
  Sender: ABBVIE
  Company Number: US-ABBVIE-5871132

PATIENT
  Age: 25 Year
  Sex: Female

DRUGS (1)
  1. LILETTA [Suspect]
     Active Substance: LEVONORGESTREL
     Indication: Product used for unknown indication
     Dosage: TIME INTERVAL: AS NECESSARY
     Route: 015
     Dates: start: 20230710

REACTIONS (4)
  - Vaginal haemorrhage [Unknown]
  - Embedded device [Unknown]
  - Pelvic pain [Unknown]
  - Dyspareunia [Unknown]

NARRATIVE: CASE EVENT DATE: 20240801
